FAERS Safety Report 6872710-8 (Version None)
Quarter: 2010Q3

REPORT INFORMATION
  Report Type: 
  Country: None (occurrence: None)
  Receive Date: 20100723
  Receipt Date: 20090129
  Transmission Date: 20110219
  Serious: Yes (Other)
  Sender: FDA-Public Use
  Company Number: US-PFIZER INC-2008091463

PATIENT
  Age: 58 Year
  Sex: Female

DRUGS (3)
  1. CHANTIX [Suspect]
     Dates: start: 20080927
  2. SPIRIVA [Concomitant]
  3. FLOVENT [Concomitant]
     Route: 055

REACTIONS (5)
  - HALLUCINATION [None]
  - HEADACHE [None]
  - HYPERSOMNIA [None]
  - ILL-DEFINED DISORDER [None]
  - NIGHTMARE [None]
